FAERS Safety Report 4591111-9 (Version None)
Quarter: 2005Q1

REPORT INFORMATION
  Report Type: 
  Country: None (occurrence: None)
  Receive Date: 20050223
  Receipt Date: 20050223
  Transmission Date: 20050727
  Serious: No
  Sender: FDA-Public Use
  Company Number: None

PATIENT
  Age: 81 Year
  Sex: Female
  Weight: 60.782 kg

DRUGS (2)
  1. CISPLATIN [Suspect]
     Indication: ANAL CANCER
     Dosage: 128MG  X1 DAY  INTRAVENOUS
     Route: 042
     Dates: start: 20050110, end: 20050110
  2. FLUOROURACIL [Suspect]
     Indication: ANAL CANCER
     Dosage: 1700MG/DAY  OVER 4 DAYS  INTRAVENOUS
     Route: 042
     Dates: start: 20050110, end: 20050113

REACTIONS (1)
  - HYPOCALCAEMIA [None]
